FAERS Safety Report 25160627 (Version 4)
Quarter: 2025Q2

REPORT INFORMATION
  Report Type: Spontaneous
  Country: FR (occurrence: FR)
  Receive Date: 20250404
  Receipt Date: 20250415
  Transmission Date: 20250716
  Serious: Yes (Other)
  Sender: INSUD PHARMA
  Company Number: FR-EXELTIS PHARMACEUTICAL HOLDING, S.L.-2503FR02422

PATIENT
  Age: 32 Year
  Sex: Female

DRUGS (1)
  1. DROSPIRENONE [Suspect]
     Active Substance: DROSPIRENONE
     Indication: Contraception
     Dosage: 4 MILLIGRAM, QD
     Route: 048

REACTIONS (1)
  - Hepatic cytolysis [Not Recovered/Not Resolved]
